FAERS Safety Report 5207550-9 (Version None)
Quarter: 2006Q4

REPORT INFORMATION
  Report Type: 
  Country: None (occurrence: None)
  Receive Date: 20061030
  Receipt Date: 20060724
  Transmission Date: 20070319
  Serious: No
  Sender: FDA-Public Use
  Company Number: 255419

PATIENT
  Age: 85 Year
  Sex: Female
  Weight: 58 kg

DRUGS (1)
  1. LEVEMIR [Suspect]
     Indication: DIABETES MELLITUS INSULIN-DEPENDENT
     Dosage: 12 IU, QD, IN THE EVENING, SUBCUTANEOUS
     Route: 058
     Dates: start: 20060701

REACTIONS (1)
  - BLOOD GLUCOSE FLUCTUATION [None]
